FAERS Safety Report 6408657-0 (Version None)
Quarter: 2009Q4

REPORT INFORMATION
  Report Type: 
  Country: None (occurrence: None)
  Receive Date: 20091021
  Receipt Date: 20091014
  Transmission Date: 20100525
  Serious: Yes (Other)
  Sender: FDA-Public Use
  Company Number: US-JNJCH-2009027319

PATIENT
  Age: 14 Year
  Sex: Male
  Weight: 43.5 kg

DRUGS (2)
  1. CHILDREN'S ZYRTEC PERFECT MEASURE SUGAR-FREE DYE-FREE ALLERGY SYRUP [Suspect]
     Indication: HYPERSENSITIVITY
     Route: 048
     Dates: start: 20091014, end: 20091014
  2. COFFEE [Concomitant]
     Indication: DRUG USE FOR UNKNOWN INDICATION
     Dosage: TEXT:UNSPECIFIED
     Route: 048

REACTIONS (3)
  - HALLUCINATION, VISUAL [None]
  - HEADACHE [None]
  - SOMNOLENCE [None]
